FAERS Safety Report 9903008 (Version 1)
Quarter: 2014Q1

REPORT INFORMATION
  Report Type: Spontaneous
  Country: US (occurrence: US)
  Receive Date: 20140217
  Receipt Date: 20140217
  Transmission Date: 20141002
  Serious: Yes (Hospitalization)
  Sender: FDA-Public Use
  Company Number: PHHY2014US016833

PATIENT
  Age: 65 Year
  Sex: Male

DRUGS (6)
  1. 5-FLUOROURACIL [Suspect]
     Indication: LUNG ADENOCARCINOMA
     Dosage: 1 G/M2
     Route: 042
  2. LEUCOVORIN CALCIUM [Concomitant]
     Indication: LUNG ADENOCARCINOMA
     Dosage: 25 MG/M2, UNK
     Route: 042
  3. CISPLATIN [Concomitant]
     Indication: LUNG ADENOCARCINOMA
     Dosage: 20 MG/M2, UNK
  4. ONDANSETRON [Concomitant]
     Indication: PROPHYLAXIS OF NAUSEA AND VOMITING
     Dosage: 32 MG, UNK
  5. DEXAMETHASONE [Concomitant]
     Indication: PROPHYLAXIS OF NAUSEA AND VOMITING
     Dosage: 10 MG, UNK
  6. LORAZEPAM [Concomitant]
     Indication: PROPHYLAXIS OF NAUSEA AND VOMITING
     Dosage: 1 MG, UNK

REACTIONS (10)
  - Encephalopathy [Recovered/Resolved]
  - Lethargy [Recovered/Resolved]
  - Disorientation [Recovered/Resolved]
  - Areflexia [Recovered/Resolved]
  - Stupor [Recovered/Resolved]
  - Clonus [Recovered/Resolved]
  - Extensor plantar response [Recovered/Resolved]
  - Dyspnoea [Recovered/Resolved]
  - Brain oedema [Recovered/Resolved]
  - Neuropathy peripheral [Recovered/Resolved]
